FAERS Safety Report 19200423 (Version 2)
Quarter: 2021Q2

REPORT INFORMATION
  Report Type: Spontaneous
  Country: RU (occurrence: RU)
  Receive Date: 20210429
  Receipt Date: 20210504
  Transmission Date: 20210717
  Serious: Yes (Death, Hospitalization, Other)
  Sender: FDA-Public Use
  Company Number: RU-ASPEN-GLO2021RU003038

PATIENT

DRUGS (2)
  1. CHLORAMBUCIL [Suspect]
     Active Substance: CHLORAMBUCIL
     Dosage: UNK
     Route: 065
     Dates: start: 2007, end: 200812
  2. CHLORAMBUCIL [Suspect]
     Active Substance: CHLORAMBUCIL
     Indication: CHRONIC LYMPHOCYTIC LEUKAEMIA
     Dosage: UNK
     Route: 065
     Dates: start: 200508, end: 200610

REACTIONS (10)
  - Disease progression [Fatal]
  - Poisoning [Fatal]
  - Respiratory tract infection viral [Unknown]
  - Central nervous system viral infection [Unknown]
  - Herpes zoster [Unknown]
  - Bowen^s disease [Unknown]
  - Disseminated mucormycosis [Fatal]
  - Multiple organ dysfunction syndrome [Fatal]
  - Tonsillitis [Unknown]
  - Pyoderma streptococcal [Unknown]

NARRATIVE: CASE EVENT DATE: 200610
